FAERS Safety Report 13411010 (Version 2)
Quarter: 2017Q4

REPORT INFORMATION
  Report Type: Spontaneous
  Country: US (occurrence: US)
  Receive Date: 20170406
  Receipt Date: 20171123
  Transmission Date: 20180320
  Serious: No
  Sender: FDA-Public Use
  Company Number: US-JNJFOC-20170305020

PATIENT
  Sex: Male

DRUGS (1)
  1. RISPERDAL [Suspect]
     Active Substance: RISPERIDONE
     Indication: AGGRESSION
     Dosage: IN VARYING DOSES OF 0.25, 0.5, 01, 02 AND 03 MG
     Route: 048
     Dates: start: 20030610, end: 20041118

REACTIONS (2)
  - Emotional disorder [Unknown]
  - Gynaecomastia [Unknown]
